FAERS Safety Report 8825831 (Version 2)
Quarter: 2012Q4

REPORT INFORMATION
  Report Type: Report from Study
  Country: CN (occurrence: CN)
  Receive Date: 20121004
  Receipt Date: 20121016
  Transmission Date: 20130627
  Serious: Yes (Other)
  Sender: FDA-Public Use
  Company Number: CN-GILEAD-2012-0062302

PATIENT
  Sex: Female

DRUGS (2)
  1. TENOFOVIR DISOPROXIL FUMARATE [Suspect]
     Indication: HEPATITIS B
     Dosage: 300 mg, UNK
     Route: 048
     Dates: start: 20120424
  2. CALCIUM CARBONATE [Concomitant]
     Indication: CALCIUM DEFICIENCY
     Dosage: UNK
     Dates: start: 20120120, end: 20120225

REACTIONS (2)
  - Meconium in amniotic fluid [Unknown]
  - Pregnancy [Recovered/Resolved]
